FAERS Safety Report 6234705-7 (Version None)
Quarter: 2009Q2

REPORT INFORMATION
  Report Type: 
  Country: None (occurrence: None)
  Receive Date: 20090615
  Receipt Date: 20090604
  Transmission Date: 20091009
  Serious: Yes (Death, Hospitalization)
  Sender: FDA-Public Use
  Company Number: CERZ-1000656

PATIENT
  Age: 10 Year
  Sex: Male

DRUGS (4)
  1. CEREZYME [Suspect]
     Indication: GAUCHER'S DISEASE
     Dosage: 800 IU, Q2W, INTRAVENOUS
     Route: 042
     Dates: start: 20001001, end: 20081216
  2. TPN [Concomitant]
  3. CARBOCISTEINE (CARBOCISTEINE) [Concomitant]
  4. FENOTEROL HYDROBROMIDE (FENOTEROL HYDROBROMIDE) [Concomitant]

REACTIONS (13)
  - APRAXIA [None]
  - BRONCHITIS CHRONIC [None]
  - CARDIO-RESPIRATORY ARREST [None]
  - COMMUNICATION DISORDER [None]
  - CONDITION AGGRAVATED [None]
  - CONVULSION [None]
  - DRUG SPECIFIC ANTIBODY PRESENT [None]
  - DYSPHAGIA [None]
  - INCREASED UPPER AIRWAY SECRETION [None]
  - MOVEMENT DISORDER [None]
  - MYOCLONUS [None]
  - NEUROPATHY PERIPHERAL [None]
  - SHOCK [None]
